FAERS Safety Report 6727624-0 (Version None)
Quarter: 2010Q2

REPORT INFORMATION
  Report Type: 
  Country: None (occurrence: None)
  Receive Date: 20100517
  Receipt Date: 20100505
  Transmission Date: 20101027
  Serious: Yes (Other)
  Sender: FDA-Public Use
  Company Number: US-B.I. PHARMACEUTICALS,INC./RIDGEFIELD-2010-DE-02533GD

PATIENT
  Age: 6 Month
  Sex: Male

DRUGS (1)
  1. RANITIDINE [Suspect]
     Indication: GASTROOESOPHAGEAL REFLUX DISEASE
     Dosage: 22.5 MG/KG
     Route: 048

REACTIONS (8)
  - ABNORMAL BEHAVIOUR [None]
  - DRUG PRESCRIBING ERROR [None]
  - MOVEMENT DISORDER [None]
  - NEUROTOXICITY [None]
  - OVERDOSE [None]
  - POOR QUALITY SLEEP [None]
  - RESTLESSNESS [None]
  - TREMOR [None]
